FAERS Safety Report 4838296-4 (Version None)
Quarter: 2005Q4

REPORT INFORMATION
  Report Type: 
  Country: None (occurrence: None)
  Receive Date: 20051123
  Receipt Date: 20051118
  Transmission Date: 20060501
  Serious: Yes (Death)
  Sender: FDA-Public Use
  Company Number: 2005AD000117

PATIENT
  Age: 80 Year
  Sex: Male

DRUGS (11)
  1. CEPHALEXIN [Suspect]
     Dosage: PO
     Route: 048
  2. ALLOPURINOL [Suspect]
     Indication: GOUT
  3. THIAMINE [Concomitant]
  4. BISOPROLOL [Concomitant]
  5. SIMVASTATIN [Concomitant]
  6. COLCHICINE [Concomitant]
  7. FUROSEMIDE [Concomitant]
  8. FERROUS SULFATE TAB [Concomitant]
  9. ACETYLSALICYLIC ACID [Concomitant]
  10. SPIRONOLACTONE [Concomitant]
  11. LANSOPRAZOLE [Concomitant]

REACTIONS (9)
  - ALANINE AMINOTRANSFERASE INCREASED [None]
  - BLOOD BILIRUBIN INCREASED [None]
  - BLOOD CREATINE PHOSPHOKINASE INCREASED [None]
  - BLOOD CREATINE PHOSPHOKINASE MB INCREASED [None]
  - BLOOD CREATININE INCREASED [None]
  - BLOOD SODIUM DECREASED [None]
  - HAEMOGLOBIN DECREASED [None]
  - PLATELET COUNT DECREASED [None]
  - STEVENS-JOHNSON SYNDROME [None]
